FAERS Safety Report 12194396 (Version 3)
Quarter: 2016Q4

REPORT INFORMATION
  Report Type: Report from Study
  Country: CN (occurrence: CN)
  Receive Date: 20160321
  Receipt Date: 20161219
  Transmission Date: 20170207
  Serious: Yes (Other)
  Sender: FDA-Public Use
  Company Number: CN-ROCHE-1729365

PATIENT
  Sex: Male
  Weight: 60 kg

DRUGS (1)
  1. AVASTIN [Suspect]
     Active Substance: BEVACIZUMAB
     Indication: RECTAL CANCER
     Route: 041
     Dates: start: 20151202

REACTIONS (5)
  - Protein urine present [Unknown]
  - Procedural haemorrhage [Unknown]
  - Weight decreased [Unknown]
  - Hepatic neoplasm [Unknown]
  - Oedema [Unknown]
